FAERS Safety Report 9673053 (Version 1)
Quarter: 2013Q4

REPORT INFORMATION
  Report Type: Spontaneous
  Country: US (occurrence: US)
  Receive Date: 20131106
  Receipt Date: 20131106
  Transmission Date: 20140711
  Serious: No
  Sender: FDA-Public Use
  Company Number: US-AMGEN-USASP2013070218

PATIENT
  Age: 2 Year
  Sex: 0

DRUGS (2)
  1. ENBREL [Suspect]
     Indication: ARTHRITIS
     Dosage: UNK
     Route: 065
  2. METHOTREXATE [Concomitant]
     Dosage: UNK

REACTIONS (1)
  - Ear infection [Unknown]
